FAERS Safety Report 13213621 (Version 1)
Quarter: 2017Q1

REPORT INFORMATION
  Report Type: Spontaneous
  Country: US (occurrence: US)
  Receive Date: 20170210
  Receipt Date: 20170210
  Transmission Date: 20170428
  Serious: No
  Sender: FDA-Public Use
  Company Number: US-PERRIGO-16US016341

PATIENT
  Sex: Female

DRUGS (6)
  1. HYDROQUINONE. [Suspect]
     Active Substance: HYDROQUINONE
     Indication: PRODUCT USED FOR UNKNOWN INDICATION
     Dosage: UNK
     Route: 065
     Dates: start: 201512
  2. TRETINOIN. [Suspect]
     Active Substance: TRETINOIN
     Indication: PRODUCT USED FOR UNKNOWN INDICATION
     Dosage: UNK
     Route: 061
     Dates: start: 201512
  3. HYDROQUINONE. [Suspect]
     Active Substance: HYDROQUINONE
     Dosage: UNK
     Route: 065
     Dates: start: 201512
  4. EXODERM [Suspect]
     Active Substance: ALCOHOL\PHENOL
     Indication: PRODUCT USED FOR UNKNOWN INDICATION
     Dosage: UNK
     Route: 065
     Dates: start: 201512
  5. HYDROQUINONE. [Suspect]
     Active Substance: HYDROQUINONE
     Dosage: UNK
     Route: 065
     Dates: start: 201512
  6. HYDROQUINONE. [Suspect]
     Active Substance: HYDROQUINONE
     Dosage: UNK
     Route: 065
     Dates: start: 201512

REACTIONS (1)
  - Application site rash [Recovered/Resolved]

NARRATIVE: CASE EVENT DATE: 201512
